FAERS Safety Report 8959831 (Version 1)
Quarter: 2012Q4

REPORT INFORMATION
  Report Type: 
  Country: RU (occurrence: RU)
  Receive Date: 20121212
  Receipt Date: 20121212
  Transmission Date: 20130627
  Serious: Yes (Other)
  Sender: FDA-Public Use
  Company Number: RU-ASTRAZENECA-2012SE91619

PATIENT
  Age: 71 Year
  Sex: Male

DRUGS (6)
  1. BRILINTA [Suspect]
     Indication: CORONARY ARTERY DISEASE
     Route: 048
     Dates: start: 201211, end: 201211
  2. BRILINTA [Suspect]
     Indication: HYPERTROPHIC CARDIOMYOPATHY
     Route: 048
     Dates: start: 201211, end: 201211
  3. BRILINTA [Suspect]
     Indication: HYPERTENSION
     Route: 048
     Dates: start: 201211, end: 201211
  4. BRILINTA [Suspect]
     Indication: CORONARY ARTERY DISEASE
     Route: 048
     Dates: start: 201211, end: 201211
  5. BRILINTA [Suspect]
     Indication: HYPERTROPHIC CARDIOMYOPATHY
     Route: 048
     Dates: start: 201211, end: 201211
  6. BRILINTA [Suspect]
     Indication: HYPERTENSION
     Route: 048
     Dates: start: 201211, end: 201211

REACTIONS (1)
  - Dyspnoea [Recovered/Resolved]
